FAERS Safety Report 7828870-5 (Version None)
Quarter: 2011Q4

REPORT INFORMATION
  Report Type: 
  Country: None (occurrence: None)
  Receive Date: 20111019
  Receipt Date: 20110923
  Transmission Date: 20120403
  Serious: Yes (Other)
  Sender: FDA-Public Use
  Company Number: TCI2011A05534

PATIENT
  Age: 71 Year
  Sex: Male

DRUGS (4)
  1. ACTOS [Suspect]
     Indication: DIABETES MELLITUS
     Dosage: PER ORAL
     Route: 048
  2. MITIGLINIDE [Concomitant]
  3. CALCIUM (MITIGLINIDE CALCIUM) [Concomitant]
  4. METFORMIN HCL [Concomitant]

REACTIONS (1)
  - BLADDER CANCER [None]
